FAERS Safety Report 13599762 (Version 1)
Quarter: 2017Q2

REPORT INFORMATION
  Report Type: Spontaneous
  Country: PR (occurrence: PR)
  Receive Date: 20170601
  Receipt Date: 20170601
  Transmission Date: 20170830
  Serious: No
  Sender: FDA-Public Use
  Company Number: PR-BAXTER-2017BAX021960

PATIENT
  Age: 2 Day
  Sex: Female
  Weight: 2.86 kg

DRUGS (10)
  1. CA GLUCONATE [Suspect]
     Active Substance: CALCIUM GLUCONATE
     Indication: PARENTERAL NUTRITION
     Route: 042
     Dates: start: 20170520, end: 20170520
  2. STERILE WATER [Suspect]
     Active Substance: WATER
     Indication: PARENTERAL NUTRITION
     Route: 042
     Dates: start: 20170520, end: 20170520
  3. MG SULFATE [Suspect]
     Active Substance: MAGNESIUM SULFATE
     Indication: PARENTERAL NUTRITION
     Route: 042
     Dates: start: 20170520, end: 20170520
  4. MULTITRACE -4 PEDIATRIC [Suspect]
     Active Substance: CHROMIC CHLORIDE\CUPRIC SULFATE\MANGANESE SULFATE\ZINC SULFATE HEPTAHYDRATE
     Indication: PARENTERAL NUTRITION
     Route: 042
     Dates: start: 20170520, end: 20170520
  5. NA PHOSPHATE [Suspect]
     Active Substance: SODIUM PHOSPHATE
     Indication: PARENTERAL NUTRITION
     Route: 042
     Dates: start: 20170520, end: 20170520
  6. 70% DEXTROSE INJECTION USP [Suspect]
     Active Substance: DEXTROSE
     Indication: PARENTERAL NUTRITION
     Route: 042
     Dates: start: 20170520, end: 20170520
  7. PEDIATRIC INFUVITE MULTIPLE VITAMINS [Suspect]
     Active Substance: ALPHA-TOCOPHEROL ACETATE\ASCORBIC ACID\BIOTIN\CHOLECALCIFEROL\CYANOCOBALAMIN\DEXPANTHENOL\FOLIC ACID\NIACINAMIDE\PHYTONADIONE\PYRIDOXINE HYDROCHLORIDE\RIBOFLAVIN 5^-PHOSPHATE SODIUM\THIAMINE HYDROCHLORIDE\VITAMIN A PALMITATE
     Indication: PARENTERAL NUTRITION
     Route: 042
     Dates: start: 20170520, end: 20170520
  8. PREMASOL 6% [Suspect]
     Active Substance: AMINO ACIDS
     Indication: PARENTERAL NUTRITION
     Route: 042
     Dates: start: 20170520, end: 20170520
  9. 5% SODIUM CHLORIDE INJECTION [Suspect]
     Active Substance: SODIUM CHLORIDE
     Indication: PARENTERAL NUTRITION
     Route: 042
     Dates: start: 20170520, end: 20170520
  10. PREMASOL 6% [Suspect]
     Active Substance: AMINO ACIDS
     Dosage: DOSE INCREASED
     Route: 042

REACTIONS (2)
  - Product preparation error [Recovered/Resolved]
  - Blood sodium increased [Recovering/Resolving]

NARRATIVE: CASE EVENT DATE: 20170520
